FAERS Safety Report 21206132 (Version 1)
Quarter: 2022Q3

REPORT INFORMATION
  Report Type: Report from Study
  Country: CA (occurrence: CA)
  Receive Date: 20220812
  Receipt Date: 20220812
  Transmission Date: 20221027
  Serious: Yes (Other)
  Sender: FDA-Public Use
  Company Number: None

PATIENT
  Age: 54 Year
  Sex: Female

DRUGS (5)
  1. METHOTREXATE [Interacting]
     Active Substance: METHOTREXATE
     Indication: Product used for unknown indication
     Route: 065
  2. PANTOPRAZOLE [Interacting]
     Active Substance: PANTOPRAZOLE
     Indication: Product used for unknown indication
     Route: 065
  3. FOLIC ACID [Interacting]
     Active Substance: FOLIC ACID
     Indication: Product used for unknown indication
     Route: 065
  4. SULFASALAZINE [Interacting]
     Active Substance: SULFASALAZINE
     Indication: Product used for unknown indication
     Route: 065
  5. HYDROXYCHLOROQUINE [Concomitant]
     Active Substance: HYDROXYCHLOROQUINE
     Indication: Product used for unknown indication
     Route: 065

REACTIONS (10)
  - Drug interaction [Unknown]
  - Dysstasia [Unknown]
  - Gait disturbance [Unknown]
  - General physical health deterioration [Unknown]
  - Grip strength decreased [Unknown]
  - Illness [Unknown]
  - Mental impairment [Unknown]
  - Mobility decreased [Unknown]
  - Pain [Unknown]
  - Pneumothorax [Unknown]
